FAERS Safety Report 4948952-5 (Version None)
Quarter: 2006Q1

REPORT INFORMATION
  Report Type: 
  Country: None (occurrence: None)
  Receive Date: 20060315
  Receipt Date: 20060224
  Transmission Date: 20060701
  Serious: Yes (Other)
  Sender: FDA-Public Use
  Company Number: USA041285061

PATIENT
  Age: 57 Year
  Sex: Female
  Weight: 49.1 kg

DRUGS (5)
  1. FORTEO [Suspect]
     Indication: OSTEOPOROSIS
     Dosage: 20 UG, DAILY (1/D),
     Dates: start: 20040601, end: 20040619
  2. FORTEO [Suspect]
     Indication: OSTEOPOROSIS
     Dosage: 20 UG, DAILY (1/D),
     Dates: start: 20040701, end: 20041007
  3. FORTEO PEN, 250MCG/ML (3ML) (FORTEO PEN 250 MCG/ML (3ML)) PEN, DISPOSA [Concomitant]
  4. CALCIUM WITH VITAMIN D (CALCIUM PHOSPHATE, CALCIUM SODIUM LACTATE, ERG [Concomitant]
  5. MAGNESIUM (MAGNESIUM ASPARTATE) [Concomitant]

REACTIONS (4)
  - BLOOD CALCIUM INCREASED [None]
  - PHARMACEUTICAL PRODUCT COMPLAINT [None]
  - PIGMENTATION DISORDER [None]
  - SKIN DISCOLOURATION [None]
